FAERS Safety Report 20991803 (Version 1)
Quarter: 2022Q2

REPORT INFORMATION
  Report Type: Spontaneous
  Country: US (occurrence: None)
  Receive Date: 20220621
  Receipt Date: 20220621
  Transmission Date: 20220720
  Serious: Yes (Hospitalization)
  Sender: FDA-Public Use
  Company Number: None

PATIENT
  Age: 36 Year
  Sex: Female

DRUGS (1)
  1. SAPROPTERIN DIHYDROCHLORIDE [Suspect]
     Active Substance: SAPROPTERIN DIHYDROCHLORIDE
     Dosage: 1700MG DAILY ORAL?
     Route: 048

REACTIONS (3)
  - Heart rate increased [None]
  - Chest discomfort [None]
  - Therapy change [None]

NARRATIVE: CASE EVENT DATE: 20220621
